FAERS Safety Report 7938160-8 (Version None)
Quarter: 2011Q4

REPORT INFORMATION
  Report Type: 
  Country: None (occurrence: None)
  Receive Date: 20111123
  Receipt Date: 20111017
  Transmission Date: 20120403
  Serious: No
  Sender: FDA-Public Use
  Company Number: US-BRISTOL-MYERS SQUIBB COMPANY-16168221

PATIENT
  Sex: Female

DRUGS (3)
  1. GLIPIZIDE AND METFORMIN HCL [Suspect]
  2. ONGLYZA [Suspect]
  3. KOMBIGLYZE XR [Suspect]

REACTIONS (1)
  - ABDOMINAL PAIN UPPER [None]
